FAERS Safety Report 7746472-6 (Version None)
Quarter: 2011Q3

REPORT INFORMATION
  Report Type: 
  Country: None (occurrence: None)
  Receive Date: 20110913
  Receipt Date: 20110825
  Transmission Date: 20111222
  Serious: No
  Sender: FDA-Public Use
  Company Number: US-BAYER-2011-078799

PATIENT
  Sex: Female

DRUGS (2)
  1. MUSCLE RELAXANTS [Concomitant]
     Dosage: UNK
     Dates: start: 20110719
  2. ALEVE (CAPLET) [Suspect]
     Indication: DYSMENORRHOEA
     Dosage: DAILY DOSE 7 DF
     Route: 048
     Dates: start: 20110719

REACTIONS (3)
  - DYSMENORRHOEA [None]
  - PELVIC PAIN [None]
  - BACK PAIN [None]
